FAERS Safety Report 19909760 (Version 4)
Quarter: 2022Q3

REPORT INFORMATION
  Report Type: Report from Study
  Country: US (occurrence: US)
  Receive Date: 20211003
  Receipt Date: 20220911
  Transmission Date: 20221027
  Serious: No
  Sender: FDA-Public Use
  Company Number: US-SA-SAC20210928000207

PATIENT
  Age: 48 Year
  Sex: Male

DRUGS (3)
  1. DUPILUMAB [Suspect]
     Active Substance: DUPILUMAB
     Indication: Dermatitis atopic
     Dosage: 600 MG, 1X
     Route: 058
     Dates: start: 20210611, end: 20210611
  2. DUPILUMAB [Suspect]
     Active Substance: DUPILUMAB
     Dosage: 300 MG, QOW
     Route: 058
     Dates: start: 202106
  3. DUPILUMAB [Suspect]
     Active Substance: DUPILUMAB
     Dosage: UNK, Q4W
     Dates: start: 2022

REACTIONS (8)
  - Eyelid irritation [Unknown]
  - Eye infection [Unknown]
  - Ocular hyperaemia [Recovered/Resolved]
  - Pruritus [Unknown]
  - Product use issue [Unknown]
  - Eye pruritus [Recovered/Resolved]
  - Dry eye [Unknown]
  - Rash macular [Unknown]

NARRATIVE: CASE EVENT DATE: 20220101
